FAERS Safety Report 7731141-9 (Version None)
Quarter: 2011Q3

REPORT INFORMATION
  Report Type: 
  Country: None (occurrence: None)
  Receive Date: 20110906
  Receipt Date: 20110906
  Transmission Date: 20111222
  Serious: Yes (Other)
  Sender: FDA-Public Use
  Company Number: None

PATIENT
  Age: 58 Year
  Sex: Female
  Weight: 73.935 kg

DRUGS (1)
  1. SUPREP BOWEL PREP KIT [Suspect]
     Indication: COLONOSCOPY
     Dosage: 16 OZ CONCENTRATED LIQUID
     Route: 048
     Dates: start: 20110515, end: 20110515

REACTIONS (5)
  - HEART RATE IRREGULAR [None]
  - SOMNOLENCE [None]
  - ABDOMINAL PAIN [None]
  - CONSTIPATION [None]
  - ABDOMINAL DISTENSION [None]
